FAERS Safety Report 4388628-9 (Version None)
Quarter: 2004Q2

REPORT INFORMATION
  Report Type: 
  Country: None (occurrence: None)
  Receive Date: 20040624
  Receipt Date: 20040610
  Transmission Date: 20050107
  Serious: Yes (Hospitalization)
  Sender: FDA-Public Use
  Company Number: FABR-10637

PATIENT
  Age: 51 Year
  Sex: Male

DRUGS (6)
  1. FABRAZYME [Suspect]
     Indication: FABRY'S DISEASE
     Dosage: 50 MG Q2WKS IV
     Route: 042
     Dates: end: 20040609
  2. FABRAZYME [Suspect]
  3. FABRAZYME [Suspect]
  4. FAMOTIDINE [Concomitant]
  5. TEPRENONE 10% [Concomitant]
  6. ASPIRIN [Concomitant]

REACTIONS (3)
  - EPISTAXIS [None]
  - NASOPHARYNGITIS [None]
  - PLATELET COUNT DECREASED [None]
